FAERS Safety Report 6647634-1 (Version None)
Quarter: 2010Q1

REPORT INFORMATION
  Report Type: 
  Country: None (occurrence: None)
  Receive Date: 20100323
  Receipt Date: 20100323
  Transmission Date: 20100710
  Serious: Yes (Other)
  Sender: FDA-Public Use
  Company Number: None

PATIENT
  Age: 25 Year
  Sex: Female
  Weight: 83.4619 kg

DRUGS (2)
  1. DEPO-PROVERA [Suspect]
     Indication: CONTRACEPTION
     Dosage: 150MG EVERY 3 MONTHS INJ. IM
     Route: 030
     Dates: start: 20000101, end: 20040101
  2. DEPO-PROVERA [Suspect]
     Indication: CONTRACEPTION
     Dosage: 150MG EVERY 3 MONTHS INJ. IM
     Route: 030
     Dates: start: 20050101, end: 20090101

REACTIONS (3)
  - POLYCYSTIC OVARIES [None]
  - STRESS FRACTURE [None]
  - THYROID DISORDER [None]
